FAERS Safety Report 7051543-6 (Version None)
Quarter: 2010Q4

REPORT INFORMATION
  Report Type: 
  Country: None (occurrence: None)
  Receive Date: 20101019
  Receipt Date: 20101011
  Transmission Date: 20110411
  Serious: Yes (Hospitalization)
  Sender: FDA-Public Use
  Company Number: PHHO2010GB12497

PATIENT
  Sex: Male
  Weight: 76 kg

DRUGS (4)
  1. ZOLEDRONATE T29581+SOLINJ+BM [Suspect]
     Indication: METASTASES TO BONE
     Dosage: UNK
     Route: 042
     Dates: start: 20100506
  2. DOCETAXEL [Suspect]
     Indication: METASTASES TO BONE
     Dosage: UNK
     Dates: start: 20100506
  3. PREDNISOLONE [Suspect]
     Indication: METASTASES TO BONE
     Dosage: UNK
     Dates: start: 20100506
  4. RAMIPRIL [Concomitant]

REACTIONS (6)
  - LETHARGY [None]
  - LUNG CONSOLIDATION [None]
  - MALAISE [None]
  - PNEUMONIA [None]
  - RENAL FAILURE [None]
  - RENAL IMPAIRMENT [None]
